FAERS Safety Report 7007717-3 (Version None)
Quarter: 2010Q3

REPORT INFORMATION
  Report Type: 
  Country: None (occurrence: None)
  Receive Date: 20100920
  Receipt Date: 20100908
  Transmission Date: 20110219
  Serious: Yes (Other)
  Sender: FDA-Public Use
  Company Number: DSJ-2010-15747

PATIENT
  Age: 79 Year
  Sex: Female
  Weight: 42 kg

DRUGS (12)
  1. OLMETEC (OLMESARTAN MEDOXOMIL) (TABLET) (OLMESARTAN MEDOXOMIL) [Suspect]
     Indication: ESSENTIAL HYPERTENSION
     Dosage: 40 MG, PER ORAL
     Route: 048
     Dates: start: 20100327, end: 20100415
  2. NATRIX (INDAPAMIDE) (TABLET) (INDAPAMIDE) [Concomitant]
  3. ATELEC (CILNIDIPINE) (TABLET) (CILNIDIPINE) [Concomitant]
  4. DILTIAZEM HYDROCHLORIDE [Concomitant]
  5. CRESTOR [Concomitant]
  6. AMARYL [Concomitant]
  7. BASEN (VOGLIBOSE) (VOGLIBOSE) [Concomitant]
  8. PREDONINE (PREDNISOLONE) (PREDNISOLONE) [Concomitant]
  9. ALFAROL (ALFACALCIDOL) (ALFACALCIDOL) [Concomitant]
  10. GASMOTIN (MOSAPRIDE CITRATE) (MOSAPRIDE CITRATE) [Concomitant]
  11. MAGLAX (MAGNESIUM OXIDE) (MAGNESIUM OXIDE) [Concomitant]
  12. FOSAMAC (ALENDRONATE SODIUM) (ALENDRONATE SODIUM) [Concomitant]

REACTIONS (1)
  - BLOOD PRESSURE INCREASED [None]
